FAERS Safety Report 21807754 (Version 1)
Quarter: 2023Q1

REPORT INFORMATION
  Report Type: Report from Study
  Country: US (occurrence: US)
  Receive Date: 20230103
  Receipt Date: 20230103
  Transmission Date: 20230418
  Serious: No
  Sender: FDA-Public Use
  Company Number: US-ABBVIE-4224933

PATIENT
  Sex: Male

DRUGS (1)
  1. HUMIRA [Suspect]
     Active Substance: ADALIMUMAB
     Indication: Crohn^s disease
     Route: 058

REACTIONS (7)
  - Diarrhoea [Not Recovered/Not Resolved]
  - Increased tendency to bruise [Unknown]
  - Haemorrhage [Unknown]
  - Chromaturia [Unknown]
  - Sinus disorder [Unknown]
  - Nasopharyngitis [Unknown]
  - Fatigue [Unknown]
